FAERS Safety Report 11778975 (Version 1)
Quarter: 2015Q4

REPORT INFORMATION
  Report Type: Spontaneous
  Country: US (occurrence: US)
  Receive Date: 20151125
  Receipt Date: 20151125
  Transmission Date: 20160304
  Serious: Yes (Other)
  Sender: FDA-Public Use
  Company Number: US-PFIZER INC-2015405319

PATIENT
  Sex: Female

DRUGS (3)
  1. FLANAX CAPS [Suspect]
     Active Substance: NAPROXEN
     Indication: ANXIETY
     Dosage: UNK
  2. ADVIL [Suspect]
     Active Substance: IBUPROFEN
     Indication: ANXIETY
     Dosage: UNK
  3. ALEVE [Suspect]
     Active Substance: NAPROXEN SODIUM
     Indication: ANXIETY
     Dosage: UNK

REACTIONS (2)
  - Drug abuse [Unknown]
  - Product use issue [Unknown]
